FAERS Safety Report 11213122 (Version 1)
Quarter: 2015Q2

REPORT INFORMATION
  Report Type: Report from Study
  Country: CO (occurrence: CO)
  Receive Date: 20150623
  Receipt Date: 20150623
  Transmission Date: 20150821
  Serious: Yes (Hospitalization)
  Sender: FDA-Public Use
  Company Number: CO-ABBVIE-15K-036-1401688-00

PATIENT
  Age: 40 Year
  Sex: Male
  Weight: 64 kg

DRUGS (1)
  1. HUMIRA [Suspect]
     Active Substance: ADALIMUMAB
     Indication: CROHN^S DISEASE
     Route: 058
     Dates: start: 20120830, end: 20150423

REACTIONS (5)
  - Abdominal pain [Recovering/Resolving]
  - Localised intraabdominal fluid collection [Recovering/Resolving]
  - Bacterial infection [Not Recovered/Not Resolved]
  - Purulent discharge [Unknown]
  - Purulence [Recovering/Resolving]

NARRATIVE: CASE EVENT DATE: 2015
